FAERS Safety Report 24642238 (Version 1)
Quarter: 2024Q4

REPORT INFORMATION
  Report Type: Spontaneous
  Country: IN (occurrence: IN)
  Receive Date: 20241120
  Receipt Date: 20241120
  Transmission Date: 20250115
  Serious: Yes (Other)
  Sender: ARGENX BVBA
  Company Number: IN-ARGENX-2024-ARGX-IN010353

PATIENT

DRUGS (1)
  1. VYVGART [Suspect]
     Active Substance: EFGARTIGIMOD ALFA-FCAB
     Indication: Myasthenia gravis
     Dosage: 1/WEEK, ONCE A WEEK FOR 4 WEEKS THEN A 3 WEEK GAP
     Route: 042

REACTIONS (5)
  - Myasthenia gravis crisis [Unknown]
  - Somnolence [Unknown]
  - Off label use [Unknown]
  - Rash [Unknown]
  - Therapeutic response shortened [Unknown]
